FAERS Safety Report 25953803 (Version 1)
Quarter: 2025Q4

REPORT INFORMATION
  Report Type: Spontaneous
  Country: US (occurrence: US)
  Receive Date: 20251023
  Receipt Date: 20251023
  Transmission Date: 20260118
  Serious: Yes (Other)
  Sender: NOVO NORDISK
  Company Number: US-NOVOPROD-1539254

PATIENT
  Sex: Female

DRUGS (2)
  1. TRESIBA [Suspect]
     Active Substance: INSULIN DEGLUDEC
     Indication: Renal impairment
     Dosage: 40
     Dates: start: 2020
  2. TRULICITY [Concomitant]
     Active Substance: DULAGLUTIDE
     Indication: Renal impairment
     Dosage: UNK, QW

REACTIONS (2)
  - Cataract [Unknown]
  - Off label use [Unknown]

NARRATIVE: CASE EVENT DATE: 20200101
